FAERS Safety Report 17016334 (Version 1)
Quarter: 2019Q4

REPORT INFORMATION
  Report Type: Spontaneous
  Country: US (occurrence: US)
  Receive Date: 20191004
  Receipt Date: 20191004
  Transmission Date: 20200122
  Serious: No
  Sender: FDA-Public Use
  Company Number: None

PATIENT
  Age: 32 Year
  Sex: Female

DRUGS (1)
  1. PREDNISONE 5MG TAB [Suspect]
     Active Substance: PREDNISONE
     Dosage: ?          OTHER FREQUENCY:UNKNOWN;OTHER ROUTE:UNKNOWN?
     Dates: end: 201908

REACTIONS (1)
  - Fatigue [None]

NARRATIVE: CASE EVENT DATE: 20190730
